FAERS Safety Report 8046770-5 (Version None)
Quarter: 2012Q1

REPORT INFORMATION
  Report Type: 
  Country: None (occurrence: None)
  Receive Date: 20120116
  Receipt Date: 20120105
  Transmission Date: 20120608
  Serious: No
  Sender: FDA-Public Use
  Company Number: US-BIOGENIDEC-2012BI000756

PATIENT
  Age: 42 Year
  Sex: Female

DRUGS (1)
  1. TYSABRI [Suspect]
     Indication: MULTIPLE SCLEROSIS
     Route: 042
     Dates: start: 20111222

REACTIONS (6)
  - GAIT DISTURBANCE [None]
  - DISTURBANCE IN ATTENTION [None]
  - COORDINATION ABNORMAL [None]
  - ARTHRALGIA [None]
  - AGRAPHIA [None]
  - DYSSTASIA [None]
